FAERS Safety Report 25165389 (Version 1)
Quarter: 2025Q2

REPORT INFORMATION
  Report Type: Spontaneous
  Country: US (occurrence: US)
  Receive Date: 20250407
  Receipt Date: 20250407
  Transmission Date: 20250717
  Serious: No
  Sender: ROCHE
  Company Number: US-ROCHE-10000245795

PATIENT
  Sex: Female

DRUGS (14)
  1. ACTEMRA ACTPEN [Suspect]
     Active Substance: TOCILIZUMAB
     Indication: Rheumatoid arthritis
     Dosage: STRENGTH: 162MG/0.9ML
     Route: 058
     Dates: start: 20250102
  2. HERBALS\WITHANIA SOMNIFERA ROOT [Concomitant]
     Active Substance: HERBALS\WITHANIA SOMNIFERA ROOT
  3. VITAMIN C [Concomitant]
     Active Substance: ASCORBIC ACID
  4. FLUTICASONE [Concomitant]
     Active Substance: FLUTICASONE
  5. MYCOPHENOLIC ACID [Concomitant]
     Active Substance: MYCOPHENOLIC ACID
  6. PANTOPRAZOLE [Concomitant]
     Active Substance: PANTOPRAZOLE
  7. PREDNISONE [Concomitant]
     Active Substance: PREDNISONE
  8. moringa [Concomitant]
  9. ZINC [Concomitant]
     Active Substance: ZINC
  10. PROBIOTICS NOS [Concomitant]
     Active Substance: PROBIOTICS NOS
  11. ATORVASTATIN [Concomitant]
     Active Substance: ATORVASTATIN
  12. DULOXETINE [Concomitant]
     Active Substance: DULOXETINE
  13. METOPROLOL [Concomitant]
     Active Substance: METOPROLOL
  14. FLAXSEED [Concomitant]
     Active Substance: FLAX SEED

REACTIONS (2)
  - Acne [Not Recovered/Not Resolved]
  - Acne cystic [Not Recovered/Not Resolved]
